FAERS Safety Report 19580155 (Version 1)
Quarter: 2021Q3

REPORT INFORMATION
  Report Type: Spontaneous
  Country: US (occurrence: US)
  Receive Date: 20210720
  Receipt Date: 20210720
  Transmission Date: 20211014
  Serious: No
  Sender: FDA-Public Use
  Company Number: US-GLAXOSMITHKLINE-US2021153571

PATIENT
  Age: 72 Year
  Sex: Female

DRUGS (1)
  1. ZEJULA [Suspect]
     Active Substance: NIRAPARIB
     Indication: OVARIAN CANCER
     Dosage: 200 MG, QD
     Route: 048
     Dates: start: 20210618

REACTIONS (5)
  - Urinary tract infection [Recovered/Resolved with Sequelae]
  - Fungal infection [Recovered/Resolved with Sequelae]
  - Stomatitis [Recovered/Resolved with Sequelae]
  - Illness [Recovered/Resolved with Sequelae]
  - Loose tooth [Recovered/Resolved with Sequelae]

NARRATIVE: CASE EVENT DATE: 202106
